FAERS Safety Report 6301197-9 (Version None)
Quarter: 2009Q3

REPORT INFORMATION
  Report Type: 
  Country: None (occurrence: None)
  Receive Date: 20090807
  Receipt Date: 20070906
  Transmission Date: 20100115
  Serious: Yes (Other)
  Sender: FDA-Public Use
  Company Number: GB-PFIZER INC-2009250549

PATIENT
  Age: 48 Year

DRUGS (5)
  1. NICOTINE [Suspect]
     Indication: SMOKING CESSATION THERAPY
     Dosage: UNSPECIFIED
     Route: 045
     Dates: start: 20060101, end: 20070401
  2. GABAPENTIN [Concomitant]
     Dosage: UNSPECIFIED
     Route: 065
  3. BACLOFEN [Concomitant]
     Dosage: UNSPECIFIED
     Route: 065
  4. PRILOSEC [Concomitant]
     Dosage: UNSPECIFIED
     Route: 065
  5. TRAMADOL [Concomitant]
     Dosage: UNSPECIFIED
     Route: 065

REACTIONS (1)
  - BLINDNESS [None]
